FAERS Safety Report 10220555 (Version 1)
Quarter: 2014Q2

REPORT INFORMATION
  Report Type: Spontaneous
  Country: CN (occurrence: None)
  Receive Date: 20140604
  Receipt Date: 20140604
  Transmission Date: 20141212
  Serious: Yes (Other)
  Sender: FDA-Public Use
  Company Number: IMP_07669_2014

PATIENT
  Age: 12 Month
  Sex: Male

DRUGS (1)
  1. VALPROIC ACID (VALPROIC ACID) [Suspect]
     Indication: EPILEPSY
     Dosage: 7 WEEKS 1 DAY UNTIL NOT CONTINUING

REACTIONS (9)
  - Drug-induced liver injury [None]
  - Alanine aminotransferase increased [None]
  - Aspartate aminotransferase increased [None]
  - Gamma-glutamyltransferase increased [None]
  - Blood bilirubin increased [None]
  - Bilirubin conjugated increased [None]
  - Blood albumin increased [None]
  - Ammonia increased [None]
  - Prothrombin time prolonged [None]
